FAERS Safety Report 20556825 (Version 1)
Quarter: 2022Q1

REPORT INFORMATION
  Report Type: Spontaneous
  Country: GB (occurrence: GB)
  Receive Date: 20220307
  Receipt Date: 20220307
  Transmission Date: 20220424
  Serious: Yes (Life-Threatening, Hospitalization, Disabling, Other)
  Sender: FDA-Public Use
  Company Number: GB-MHRA-MED-202202132213064420-TAQ4G

PATIENT
  Age: 80 Year
  Sex: Male
  Weight: 70 kg

DRUGS (3)
  1. ATORVASTATIN [Suspect]
     Active Substance: ATORVASTATIN
     Indication: Prophylaxis
     Dosage: UNK, TABLET
     Route: 065
     Dates: start: 20211220, end: 20220101
  2. APIXABAN [Concomitant]
     Active Substance: APIXABAN
     Indication: Anticoagulant therapy
     Dosage: UNK
     Route: 065
     Dates: start: 20211116
  3. ATENOLOL [Concomitant]
     Active Substance: ATENOLOL
     Indication: Heart rate
     Dosage: UNK
     Route: 065
     Dates: start: 20151231

REACTIONS (5)
  - Dyspnoea [Not Recovered/Not Resolved]
  - Cough [Not Recovered/Not Resolved]
  - Pulmonary mass [Not Recovered/Not Resolved]
  - Oxygen saturation decreased [Not Recovered/Not Resolved]
  - Pneumonia [Not Recovered/Not Resolved]

NARRATIVE: CASE EVENT DATE: 20211228
